FAERS Safety Report 5096737-4 (Version None)
Quarter: 2006Q3

REPORT INFORMATION
  Report Type: 
  Country: None (occurrence: None)
  Receive Date: 20060831
  Receipt Date: 20060630
  Transmission Date: 20061208
  Serious: Yes (Death, Life-Threatening)
  Sender: FDA-Public Use
  Company Number: 2006083843

PATIENT
  Age: 78 Year
  Sex: Male
  Weight: 59.4 kg

DRUGS (3)
  1. IRINOTECAN HYDROCHLORIDE SOLUTION, STERILE (IRINOTECAN HYDROCHLORIDE) [Suspect]
     Indication: LUNG NEOPLASM MALIGNANT
     Dosage: 95 MG (INTERMITTENT), INTRAVENOUS
     Route: 042
     Dates: start: 20060615, end: 20060622
  2. DECADRON [Concomitant]
  3. KYTRIL [Concomitant]

REACTIONS (11)
  - ELECTROCARDIOGRAM QRS COMPLEX PROLONGED [None]
  - FLUSHING [None]
  - HEART RATE INCREASED [None]
  - HYPOXIA [None]
  - INFECTION [None]
  - INTERSTITIAL LUNG DISEASE [None]
  - LEUKOPENIA [None]
  - LOSS OF CONSCIOUSNESS [None]
  - LYMPHANGIOSIS CARCINOMATOSA [None]
  - RESPIRATORY ARREST [None]
  - SHOCK [None]
